FAERS Safety Report 8260857-3 (Version None)
Quarter: 2012Q2

REPORT INFORMATION
  Report Type: 
  Country: None (occurrence: None)
  Receive Date: 20120402
  Receipt Date: 20120319
  Transmission Date: 20120825
  Serious: Yes (Death, Hospitalization, Disabling)
  Sender: FDA-Public Use
  Company Number: 2009AL002546

PATIENT
  Age: 62 Year
  Sex: Female
  Weight: 84.8226 kg

DRUGS (134)
  1. COREG [Concomitant]
  2. NEURONTIN [Concomitant]
  3. COREG [Concomitant]
  4. ACCUPRIL [Concomitant]
  5. IBUPROFEN (ADVIL) [Concomitant]
  6. ALKERAN [Concomitant]
  7. AMBIEN [Concomitant]
  8. AMOXICILLIN [Concomitant]
  9. ANTIVERT [Concomitant]
  10. ASACOL [Concomitant]
  11. CEDEX [Concomitant]
  12. DOXYCYCLINE [Concomitant]
  13. IV FLUIDS [Concomitant]
  14. D-DUR [Concomitant]
  15. LASIX [Concomitant]
  16. LOMOTIL [Concomitant]
  17. LORATADINE [Concomitant]
  18. NORVASC [Concomitant]
  19. ORIVEBTUK [Concomitant]
  20. RESTASIS [Concomitant]
  21. VITAMIN E [Concomitant]
  22. ZOFRAN [Concomitant]
  23. ASPIRIN [Concomitant]
  24. GABAPENTIN [Concomitant]
  25. NITROGLYCERIN [Concomitant]
  26. LISINOPRIL [Concomitant]
  27. FLUCONAZOLE [Concomitant]
  28. NITROGLYCERIN [Concomitant]
  29. XANAX [Concomitant]
  30. AMITRIPTYLINE HCL [Concomitant]
  31. ATRIFICIAL TEARS [Concomitant]
  32. BONIVA [Concomitant]
  33. CHLOR [Concomitant]
  34. CLARITIN [Concomitant]
  35. DEMEROL [Concomitant]
  36. ERYTHROMYCIN [Concomitant]
  37. GABAPENTIN [Concomitant]
  38. LORTAB [Concomitant]
  39. MEDROL [Concomitant]
  40. NUPERCANIAL [Concomitant]
  41. SALAGEN [Concomitant]
  42. TYLENOL (CAPLET) [Concomitant]
  43. ZESTRIL [Concomitant]
  44. HYDROCHLOROQUINE [Concomitant]
  45. PROVENTIL [Concomitant]
  46. BONIVA [Concomitant]
  47. OMEPRAZOLE [Concomitant]
  48. AUGMENTIN '125' [Concomitant]
  49. CYCLOPHOSPHAMIDE [Concomitant]
  50. DARVOCET [Concomitant]
  51. MOBIC [Concomitant]
  52. OMNICEF [Concomitant]
  53. OXYCODONE HCL [Concomitant]
  54. PERCOCET [Concomitant]
  55. PREDNISONE [Concomitant]
  56. SOLU-MEDROL [Concomitant]
  57. VANCOMYCIN [Concomitant]
  58. PREDNISONE [Concomitant]
  59. FUROSEMIDE [Concomitant]
  60. ALPRAZOLAM [Concomitant]
  61. VANCOMYCIN [Concomitant]
  62. OXYGEN [Concomitant]
  63. BIAXIN [Concomitant]
  64. LASIX [Concomitant]
  65. COLCHICINE [Concomitant]
  66. PHENERGAN HCL [Concomitant]
  67. DIFLUCAN [Concomitant]
  68. HYDROXYCHLOROQUINE SULFATE [Concomitant]
  69. LISINOPRIL [Concomitant]
  70. OMEPRAZOLE [Concomitant]
  71. PRINIVIL [Concomitant]
  72. AMBIEN [Concomitant]
  73. CARVEDILOL [Concomitant]
  74. BIAXIN [Concomitant]
  75. ASPIRIN [Concomitant]
  76. BENTYL [Concomitant]
  77. BROAD-SPECTRUM ANTIBIOTICS [Concomitant]
  78. CALCIUM CARBONATE [Concomitant]
  79. CEDAX [Concomitant]
  80. CELEBREX [Concomitant]
  81. FAMCICLOVIR [Concomitant]
  82. ASPIRIN [Concomitant]
  83. LIDODERM [Concomitant]
  84. REVLIMID [Concomitant]
  85. TIMENTIN [Concomitant]
  86. VALTREX [Concomitant]
  87. VITAMIN TAB [Concomitant]
  88. NEXIUM [Concomitant]
  89. ZOLPIDEM [Concomitant]
  90. HYOSCYAMINE [Concomitant]
  91. VICODIN [Concomitant]
  92. DECADRON [Concomitant]
  93. GENTAMICIN [Concomitant]
  94. HYDROCHLOROTHIAZIDE [Concomitant]
  95. LEVSIN [Concomitant]
  96. LOTRISONE [Concomitant]
  97. METRONIDAZOLE [Concomitant]
  98. PANCOF HC [Concomitant]
  99. MELPHALAN HYDROCHLORIDE [Concomitant]
  100. SALT WATER [Concomitant]
  101. VICODIN [Concomitant]
  102. ZANTAC [Concomitant]
  103. CLOTRIMAZOLE [Concomitant]
  104. OMEPRAZOLE [Concomitant]
  105. NORVASC [Concomitant]
  106. ANTACIDS [Concomitant]
  107. ANUSOL [Concomitant]
  108. BABY ASPIRINE [Concomitant]
  109. BRONCHOLATE [Concomitant]
  110. CIPROFLOXACIN HYDROCHLORIDE [Concomitant]
  111. GI COCTAIL [Concomitant]
  112. CODEINE [Concomitant]
  113. PLAVIX [Concomitant]
  114. PRILOSEC [Concomitant]
  115. PROCTOZONE [Concomitant]
  116. WARFARIN SODIUM [Concomitant]
  117. ZITHROMAX [Concomitant]
  118. DIGOXIN [Suspect]
     Indication: PRODUCT USED FOR UNKNOWN INDICATION
     Dosage: 0.125 MG, QD, PO
     Route: 048
     Dates: start: 20060905, end: 20080515
  119. AMOXICILLIN [Concomitant]
  120. TEMAZEPAM [Concomitant]
  121. ZOSYN [Concomitant]
  122. ARAVA [Concomitant]
  123. ATIVAN [Concomitant]
  124. VITAMIN D [Concomitant]
  125. DELTASONE [Concomitant]
  126. ELAVIL [Concomitant]
  127. MECLIZINE [Concomitant]
  128. METHOTREXATE [Concomitant]
  129. NASONEX [Concomitant]
  130. NYSTATIN [Concomitant]
  131. PLAQUENIL [Concomitant]
  132. PREVACID [Concomitant]
  133. ZOSYN [Concomitant]
  134. ZYRTEC [Concomitant]

REACTIONS (111)
  - BLOOD IMMUNOGLOBULIN G INCREASED [None]
  - ABDOMINAL PAIN [None]
  - HYPOTENSION [None]
  - MITRAL VALVE PROLAPSE [None]
  - SINUS CONGESTION [None]
  - SWELLING [None]
  - PRODUCTIVE COUGH [None]
  - DYSURIA [None]
  - MONOCLONAL GAMMOPATHY [None]
  - SNEEZING [None]
  - BLOOD CHOLESTEROL INCREASED [None]
  - MUSCLE SPASMS [None]
  - ADENOMATOUS POLYPOSIS COLI [None]
  - VIRAL INFECTION [None]
  - MULTIPLE INJURIES [None]
  - MITRAL VALVE INCOMPETENCE [None]
  - TRICUSPID VALVE INCOMPETENCE [None]
  - CARDIAC FAILURE [None]
  - HYPERTENSION [None]
  - ABDOMINAL PAIN UPPER [None]
  - HYPOAESTHESIA [None]
  - ASTHENIA [None]
  - TINEA PEDIS [None]
  - OEDEMA PERIPHERAL [None]
  - ANXIETY [None]
  - TYPE 2 DIABETES MELLITUS [None]
  - ORAL DISCOMFORT [None]
  - FALL [None]
  - CONJUNCTIVITIS [None]
  - PANCYTOPENIA [None]
  - HYPOKALAEMIA [None]
  - ANAL SKIN TAGS [None]
  - INJURY [None]
  - UPPER RESPIRATORY TRACT INFECTION [None]
  - CHOKING SENSATION [None]
  - SCLERODERMA [None]
  - RHEUMATOID ARTHRITIS [None]
  - RENAL FAILURE CHRONIC [None]
  - WEIGHT DECREASED [None]
  - DIVERTICULUM [None]
  - COLITIS [None]
  - ECONOMIC PROBLEM [None]
  - SEPSIS [None]
  - MUSCULOSKELETAL PAIN [None]
  - ANAEMIA [None]
  - CHEST PAIN [None]
  - MUSCULOSKELETAL STIFFNESS [None]
  - PULMONARY HYPERTENSION [None]
  - WEIGHT INCREASED [None]
  - VISION BLURRED [None]
  - HEADACHE [None]
  - BRONCHITIS CHRONIC [None]
  - RHINORRHOEA [None]
  - INSOMNIA [None]
  - FUNGAL SKIN INFECTION [None]
  - CARDIAC VALVE DISEASE [None]
  - GASTROOESOPHAGEAL REFLUX DISEASE [None]
  - BURSITIS [None]
  - VAGINITIS BACTERIAL [None]
  - BONE MARROW FAILURE [None]
  - ORAL CANDIDIASIS [None]
  - MULTIPLE MYELOMA [None]
  - BUNDLE BRANCH BLOCK [None]
  - NEUTROPENIA [None]
  - ARTHRALGIA [None]
  - DRY MOUTH [None]
  - DRY EYE [None]
  - SINUSITIS [None]
  - DIZZINESS [None]
  - EYE IRRITATION [None]
  - TOOTH DISORDER [None]
  - HAIR TEXTURE ABNORMAL [None]
  - URINARY TRACT INFECTION [None]
  - ABASIA [None]
  - CATARACT [None]
  - DYSPNOEA PAROXYSMAL NOCTURNAL [None]
  - MENTAL STATUS CHANGES [None]
  - OSTEOPENIA [None]
  - DEPRESSION [None]
  - ANTIPHOSPHOLIPID ANTIBODIES POSITIVE [None]
  - CARDIOMYOPATHY [None]
  - HERPES ZOSTER [None]
  - PROCTALGIA [None]
  - PRESYNCOPE [None]
  - DECREASED APPETITE [None]
  - SYSTEMIC LUPUS ERYTHEMATOSUS [None]
  - AORTIC VALVE SCLEROSIS [None]
  - FACIAL PAIN [None]
  - RASH PUSTULAR [None]
  - MUSCULOSKELETAL CHEST PAIN [None]
  - RECTAL HAEMORRHAGE [None]
  - GASTROENTERITIS [None]
  - PHARYNGITIS [None]
  - DYSARTHRIA [None]
  - NEUROPATHY PERIPHERAL [None]
  - DIARRHOEA [None]
  - STRESS [None]
  - GLOSSITIS [None]
  - BONE PAIN [None]
  - INFLUENZA [None]
  - ATELECTASIS [None]
  - PLEURAL EFFUSION [None]
  - CARDIAC FAILURE CONGESTIVE [None]
  - CANDIDIASIS [None]
  - CORONARY ARTERY DISEASE [None]
  - HAEMORRHOIDS [None]
  - NERVOUSNESS [None]
  - VITREOUS FLOATERS [None]
  - TENOSYNOVITIS [None]
  - FEBRILE NEUTROPENIA [None]
  - VAGINAL ULCERATION [None]
